FAERS Safety Report 4947884-6 (Version None)
Quarter: 2006Q1

REPORT INFORMATION
  Report Type: 
  Country: None (occurrence: None)
  Receive Date: 20060314
  Receipt Date: 20060302
  Transmission Date: 20060701
  Serious: Yes (Other)
  Sender: FDA-Public Use
  Company Number: 2006031559

PATIENT
  Age: 29 Year
  Sex: Female
  Weight: 63.5036 kg

DRUGS (1)
  1. DILANTIN [Suspect]
     Indication: GRAND MAL CONVULSION
     Dosage: 300 MG (100 MG, 3 IN 1 D),

REACTIONS (4)
  - FIBROMYALGIA [None]
  - GRAND MAL CONVULSION [None]
  - IMMOBILE [None]
  - MUSCLE ATROPHY [None]
